FAERS Safety Report 21008811 (Version 1)
Quarter: 2022Q2

REPORT INFORMATION
  Report Type: Spontaneous
  Country: CO (occurrence: CO)
  Receive Date: 20220627
  Receipt Date: 20220627
  Transmission Date: 20220721
  Serious: Yes (Death, Hospitalization)
  Sender: FDA-Public Use
  Company Number: CO-BAXTER-2022BAX013146

PATIENT
  Sex: Male
  Weight: 50 kg

DRUGS (1)
  1. DIANEAL PD-2 WITH DEXTROSE [Suspect]
     Active Substance: CALCIUM CHLORIDE\DEXTROSE\MAGNESIUM CHLORIDE\SODIUM CHLORIDE\SODIUM LACTATE
     Indication: Peritoneal dialysis
     Dosage: 4BAGS OF 2 L, QD
     Route: 033
     Dates: start: 20220601

REACTIONS (3)
  - Cardio-respiratory arrest [Fatal]
  - General physical health deterioration [Unknown]
  - Hypotension [Unknown]
